FAERS Safety Report 6417393-6 (Version None)
Quarter: 2009Q4

REPORT INFORMATION
  Report Type: 
  Country: None (occurrence: None)
  Receive Date: 20091027
  Receipt Date: 20091027
  Transmission Date: 20100525
  Serious: Yes (Hospitalization)
  Sender: FDA-Public Use
  Company Number: None

PATIENT
  Age: 49 Year
  Sex: Male
  Weight: 75.2971 kg

DRUGS (1)
  1. PROPOFOL [Suspect]
     Indication: SEDATION
     Dosage: 2 DOSES OF 20ML EACH IV BOLUS
     Route: 040
     Dates: start: 20091014, end: 20091014

REACTIONS (1)
  - PANCREATITIS ACUTE [None]
